FAERS Safety Report 25010712 (Version 1)
Quarter: 2025Q1

REPORT INFORMATION
  Report Type: Report from Study
  Country: US (occurrence: US)
  Receive Date: 20250225
  Receipt Date: 20250225
  Transmission Date: 20250409
  Serious: Yes (Hospitalization)
  Sender: SECURA BIO
  Company Number: US-SECURA BIO, INC.-SECUR-2025-US001796

PATIENT
  Age: 56 Year
  Sex: Male

DRUGS (4)
  1. DUVELISIB [Suspect]
     Active Substance: DUVELISIB
     Indication: Peripheral T-cell lymphoma unspecified
     Dosage: 25 MILLIGRAM, BID
     Route: 048
     Dates: start: 20230921, end: 20240420
  2. DUVELISIB [Suspect]
     Active Substance: DUVELISIB
     Dosage: 15 MILLIGRAM, BID
     Route: 048
     Dates: start: 20240606
  3. RUXOLITINIB [Suspect]
     Active Substance: RUXOLITINIB
     Indication: Peripheral T-cell lymphoma unspecified
     Dosage: 20 MILLIGRAM, BID
     Route: 048
     Dates: start: 20230921, end: 20240420
  4. RUXOLITINIB [Suspect]
     Active Substance: RUXOLITINIB
     Dosage: 15 MILLIGRAM, BID
     Route: 048
     Dates: start: 20240606

REACTIONS (3)
  - Respiratory failure [Unknown]
  - Dyspnoea [Unknown]
  - Pneumonia [Unknown]

NARRATIVE: CASE EVENT DATE: 20240420
